FAERS Safety Report 16882342 (Version 1)
Quarter: 2019Q4

REPORT INFORMATION
  Report Type: Spontaneous
  Country: CA (occurrence: CA)
  Receive Date: 20191003
  Receipt Date: 20191003
  Transmission Date: 20200122
  Serious: Yes (Death, Hospitalization, Other)
  Sender: FDA-Public Use
  Company Number: CA-TEVA-2019-CA-1116297

PATIENT
  Age: 22 Year
  Sex: Male

DRUGS (7)
  1. GABAPENTIN. [Suspect]
     Active Substance: GABAPENTIN
     Indication: EPILEPSY
     Dosage: 600 MILLIGRAM DAILY;
     Route: 048
  2. VALPROIC ACID. [Concomitant]
     Active Substance: VALPROIC ACID
  3. CITALOPRAM [Suspect]
     Active Substance: CITALOPRAM HYDROBROMIDE
     Indication: AGGRESSION
     Dosage: 10 MILLIGRAM DAILY;
     Route: 048
  4. PROCYCLIDINE HCL [Concomitant]
     Active Substance: PROCYCLIDINE HYDROCHLORIDE
  5. LOXAPINE. [Concomitant]
     Active Substance: LOXAPINE
  6. METHYLPHENIDATE. [Concomitant]
     Active Substance: METHYLPHENIDATE
  7. GABAPENTIN. [Suspect]
     Active Substance: GABAPENTIN
     Indication: AGGRESSION
     Dosage: 1800 MILLIGRAM DAILY;
     Route: 048

REACTIONS (5)
  - Product use in unapproved indication [Fatal]
  - Type 1 diabetes mellitus [Fatal]
  - Streptococcal sepsis [Fatal]
  - Diabetic hyperosmolar coma [Fatal]
  - Rhabdomyolysis [Fatal]
